FAERS Safety Report 9904191 (Version 1)
Quarter: 2014Q1

REPORT INFORMATION
  Report Type: Report from Study
  Country: JP (occurrence: JP)
  Receive Date: 20140218
  Receipt Date: 20140218
  Transmission Date: 20141002
  Serious: Yes (Hospitalization, Other)
  Sender: FDA-Public Use
  Company Number: JP-009507513-1402JPN008180

PATIENT
  Age: 75 Year
  Sex: Female
  Weight: 55 kg

DRUGS (14)
  1. TRYPTANOL [Suspect]
     Dosage: UNK
     Route: 048
     Dates: end: 20120716
  2. AMBRISENTAN [Suspect]
     Indication: PULMONARY HYPERTENSION
     Dosage: 5 MG, QD
     Route: 048
     Dates: start: 20120628, end: 20120716
  3. ADCIRCA [Suspect]
     Indication: PULMONARY HYPERTENSION
     Dosage: UNK
     Route: 048
     Dates: end: 20120716
  4. WARFARIN [Concomitant]
     Dosage: UNK
     Dates: end: 20120716
  5. SELBEX [Concomitant]
     Dosage: UNK
     Dates: end: 20120716
  6. PHENOBAL [Concomitant]
     Dosage: UNK
     Dates: end: 20120716
  7. TAKEPRON [Concomitant]
     Dosage: UNK
     Dates: end: 20120716
  8. PREDNISOLONE [Concomitant]
     Dosage: UNK
     Dates: end: 20120716
  9. ALEVIATIN [Concomitant]
     Dosage: UNK
     Dates: end: 20120716
  10. ALEVIATIN [Concomitant]
     Dosage: UNK
     Dates: end: 20120716
  11. EURODIN (ESTAZOLAM) [Concomitant]
     Dosage: UNK
     Dates: end: 20120716
  12. EURODIN (ESTAZOLAM) [Concomitant]
     Dosage: UNK
     Dates: end: 20120716
  13. BAKTAR [Concomitant]
     Dosage: UNK
     Dates: end: 20120716
  14. ADALAT [Concomitant]
     Dosage: UNK
     Dates: end: 20120716

REACTIONS (4)
  - Acute respiratory distress syndrome [Unknown]
  - Malaise [Unknown]
  - Headache [Unknown]
  - Dyspnoea [Unknown]
